FAERS Safety Report 15331565 (Version 1)
Quarter: 2018Q3

REPORT INFORMATION
  Report Type: Spontaneous
  Country: US (occurrence: US)
  Receive Date: 20180829
  Receipt Date: 20180829
  Transmission Date: 20181010
  Serious: Yes (Hospitalization)
  Sender: FDA-Public Use
  Company Number: US-NOVOPROD-617747

PATIENT
  Sex: Male

DRUGS (1)
  1. VICTOZA [Suspect]
     Active Substance: LIRAGLUTIDE
     Indication: PRODUCT USED FOR UNKNOWN INDICATION
     Dosage: UNK
     Route: 058
     Dates: start: 20180723

REACTIONS (4)
  - Fatigue [Unknown]
  - Dyspnoea [Unknown]
  - Heart rate increased [Unknown]
  - Weight increased [Unknown]

NARRATIVE: CASE EVENT DATE: 20180724
